FAERS Safety Report 15298963 (Version 4)
Quarter: 2018Q4

REPORT INFORMATION
  Report Type: Spontaneous
  Country: FR (occurrence: FR)
  Receive Date: 20180821
  Receipt Date: 20181205
  Transmission Date: 20190204
  Serious: Yes (Disabling, Congenital Anomaly)
  Sender: FDA-Public Use
  Company Number: FR-CONCORDIA PHARMACEUTICALS INC.-E2B_00016139

PATIENT
  Age: 0 Day
  Sex: Male
  Weight: 1.46 kg

DRUGS (3)
  1. LEVOTHYROX [Suspect]
     Active Substance: LEVOTHYROXINE
     Indication: BASEDOW^S DISEASE
     Route: 064
     Dates: start: 20170711, end: 20180205
  2. PLAQUENIL [Suspect]
     Active Substance: HYDROXYCHLOROQUINE SULFATE
     Indication: SYSTEMIC LUPUS ERYTHEMATOSUS
     Route: 064
     Dates: start: 20170711, end: 20180205
  3. NEOMERCAZOLE [Suspect]
     Active Substance: CARBIMAZOLE
     Indication: BASEDOW^S DISEASE
     Route: 064
     Dates: start: 20170711, end: 201710

REACTIONS (2)
  - Premature baby [Recovered/Resolved]
  - Congenital cystic lung [Not Recovered/Not Resolved]

NARRATIVE: CASE EVENT DATE: 201711
